FAERS Safety Report 4789684-6 (Version None)
Quarter: 2005Q4

REPORT INFORMATION
  Report Type: 
  Country: None (occurrence: None)
  Receive Date: 20051006
  Receipt Date: 20050609
  Transmission Date: 20060501
  Serious: Yes (Death, Hospitalization)
  Sender: FDA-Public Use
  Company Number: DE-BRISTOL-MYERS SQUIBB COMPANY-12999181

PATIENT
  Age: 59 Year
  Sex: Male

DRUGS (12)
  1. CISPLATIN [Suspect]
     Indication: SMALL CELL LUNG CANCER STAGE UNSPECIFIED
     Route: 042
     Dates: start: 20050518, end: 20050518
  2. TOPOTECAN HCL [Suspect]
     Indication: SMALL CELL LUNG CANCER STAGE UNSPECIFIED
     Route: 042
     Dates: start: 20050522, end: 20050522
  3. CONCOR [Concomitant]
  4. MST [Concomitant]
  5. NOVALGIN [Concomitant]
  6. PANTOZOL [Concomitant]
  7. ENALAPRIL [Concomitant]
  8. PASPERTIN [Concomitant]
  9. CEFOTIAM HYDROCHLORIDE [Concomitant]
  10. NITRO-SPRAY [Concomitant]
  11. BETAISODONA [Concomitant]
  12. AMPHOTERICIN B [Concomitant]

REACTIONS (4)
  - ANGINA PECTORIS [None]
  - DIARRHOEA [None]
  - PANCREATITIS [None]
  - VOMITING [None]
